FAERS Safety Report 10082914 (Version 1)
Quarter: 2014Q2

REPORT INFORMATION
  Report Type: Report from Study
  Country: FR (occurrence: FR)
  Receive Date: 20140417
  Receipt Date: 20140417
  Transmission Date: 20141212
  Serious: Yes (Hospitalization, Other)
  Sender: FDA-Public Use
  Company Number: FR-ROCHE-1380149

PATIENT
  Sex: Female

DRUGS (14)
  1. RITUXIMAB [Suspect]
     Indication: RHEUMATOID ARTHRITIS
     Route: 041
     Dates: start: 20090113
  2. RITUXIMAB [Suspect]
     Route: 041
     Dates: start: 20090127
  3. RITUXIMAB [Suspect]
     Route: 041
     Dates: start: 20090907
  4. RITUXIMAB [Suspect]
     Route: 041
     Dates: start: 20090921
  5. RITUXIMAB [Suspect]
     Route: 041
     Dates: start: 20100225
  6. RITUXIMAB [Suspect]
     Route: 041
     Dates: start: 20100827
  7. RITUXIMAB [Suspect]
     Route: 041
     Dates: start: 20110223
  8. RITUXIMAB [Suspect]
     Route: 041
     Dates: start: 20111027
  9. RITUXIMAB [Suspect]
     Route: 041
     Dates: start: 20120427
  10. RITUXIMAB [Suspect]
     Route: 041
     Dates: start: 20121120
  11. CORTANCYL [Concomitant]
     Route: 065
  12. CORTANCYL [Concomitant]
     Route: 065
  13. CORTANCYL [Concomitant]
     Route: 065
  14. CORTANCYL [Concomitant]
     Route: 065

REACTIONS (9)
  - Thrombocytopenia [Not Recovered/Not Resolved]
  - Anaemia [Not Recovered/Not Resolved]
  - Aplastic anaemia [Not Recovered/Not Resolved]
  - Otitis media acute [Recovered/Resolved]
  - Upper respiratory tract infection [Unknown]
  - Nasopharyngitis [Recovered/Resolved]
  - Cholestasis [Unknown]
  - Thrombocytopenia [Not Recovered/Not Resolved]
  - Diarrhoea [Unknown]
